FAERS Safety Report 13466104 (Version 3)
Quarter: 2017Q3

REPORT INFORMATION
  Report Type: Spontaneous
  Country: US (occurrence: US)
  Receive Date: 20170421
  Receipt Date: 20170818
  Transmission Date: 20171127
  Serious: No
  Sender: FDA-Public Use
  Company Number: US-PFIZER INC-2017170890

PATIENT
  Age: 45 Year
  Sex: Male

DRUGS (1)
  1. XALKORI [Suspect]
     Active Substance: CRIZOTINIB
     Dosage: 250 MG, 2X/DAY, (SWALLOW WHOLE; DO NOT CRUSH, CHEW, BREAK, DISSOLVE, OR CUT)
     Route: 048
     Dates: start: 201703

REACTIONS (2)
  - Constipation [Unknown]
  - Diarrhoea [Unknown]
